FAERS Safety Report 5365125-5 (Version None)
Quarter: 2007Q2

REPORT INFORMATION
  Report Type: 
  Country: None (occurrence: None)
  Receive Date: 20070530
  Receipt Date: 20070317
  Transmission Date: 20071010
  Serious: No
  Sender: FDA-Public Use
  Company Number: 2006PV016161

PATIENT
  Age: 57 Year
  Sex: Female
  Weight: 108.8633 kg

DRUGS (12)
  1. BYETTA [Suspect]
     Indication: DIABETES MELLITUS NON-INSULIN-DEPENDENT
     Dosage: 5 MCG; BID; SC, 5 MCG; BID; SC, 10 MCG; BID; SC
     Route: 058
     Dates: start: 20060101, end: 20060101
  2. BYETTA [Suspect]
     Indication: DIABETES MELLITUS NON-INSULIN-DEPENDENT
     Dosage: 5 MCG; BID; SC, 5 MCG; BID; SC, 10 MCG; BID; SC
     Route: 058
     Dates: start: 20060101
  3. BYETTA [Suspect]
     Indication: DIABETES MELLITUS NON-INSULIN-DEPENDENT
     Dosage: 5 MCG; BID; SC, 5 MCG; BID; SC, 10 MCG; BID; SC
     Route: 058
     Dates: start: 20060621
  4. ACTOS [Concomitant]
  5. AMARYL [Concomitant]
  6. GLIPIZIDE [Suspect]
     Indication: DIABETES MELLITUS NON-INSULIN-DEPENDENT
     Dosage: 10 MG; BID; PO, 10 MG; QAM; PO, 5 MG; QPM; PO,10 MG; BID; PO, 10 MG;QAM;PO,5 MG;QPM;PO, 10 MG;QD;PO
     Route: 048
     Dates: start: 20060201, end: 20060621
  7. GLIPIZIDE [Suspect]
     Indication: DIABETES MELLITUS NON-INSULIN-DEPENDENT
     Dosage: 10 MG; BID; PO, 10 MG; QAM; PO, 5 MG; QPM; PO,10 MG; BID; PO, 10 MG;QAM;PO,5 MG;QPM;PO, 10 MG;QD;PO
     Route: 048
     Dates: start: 20060620, end: 20060621
  8. GLIPIZIDE [Suspect]
     Indication: DIABETES MELLITUS NON-INSULIN-DEPENDENT
     Dosage: 10 MG; BID; PO, 10 MG; QAM; PO, 5 MG; QPM; PO,10 MG; BID; PO, 10 MG;QAM;PO,5 MG;QPM;PO, 10 MG;QD;PO
     Route: 048
     Dates: start: 20060621, end: 20060621
  9. GLIPIZIDE [Suspect]
     Indication: DIABETES MELLITUS NON-INSULIN-DEPENDENT
     Dosage: 10 MG; BID; PO, 10 MG; QAM; PO, 5 MG; QPM; PO,10 MG; BID; PO, 10 MG;QAM;PO,5 MG;QPM;PO, 10 MG;QD;PO
     Route: 048
     Dates: start: 20060101, end: 20070101
  10. GLIPIZIDE [Suspect]
     Indication: DIABETES MELLITUS NON-INSULIN-DEPENDENT
     Dosage: 10 MG; BID; PO, 10 MG; QAM; PO, 5 MG; QPM; PO,10 MG; BID; PO, 10 MG;QAM;PO,5 MG;QPM;PO, 10 MG;QD;PO
     Route: 048
     Dates: start: 20060101, end: 20070101
  11. GLIPIZIDE [Suspect]
     Indication: DIABETES MELLITUS NON-INSULIN-DEPENDENT
     Dosage: 10 MG; BID; PO, 10 MG; QAM; PO, 5 MG; QPM; PO,10 MG; BID; PO, 10 MG;QAM;PO,5 MG;QPM;PO, 10 MG;QD;PO
     Route: 048
     Dates: start: 20060621
  12. GLIPIZIDE [Suspect]
     Indication: DIABETES MELLITUS NON-INSULIN-DEPENDENT
     Dosage: 10 MG; BID; PO, 10 MG; QAM; PO, 5 MG; QPM; PO,10 MG; BID; PO, 10 MG;QAM;PO,5 MG;QPM;PO, 10 MG;QD;PO
     Route: 048
     Dates: start: 20070301

REACTIONS (6)
  - BLOOD GLUCOSE DECREASED [None]
  - BLOOD GLUCOSE INCREASED [None]
  - DECREASED APPETITE [None]
  - DIZZINESS [None]
  - HYPERHIDROSIS [None]
  - WEIGHT DECREASED [None]
